FAERS Safety Report 17989764 (Version 1)
Quarter: 2020Q3

REPORT INFORMATION
  Report Type: Spontaneous
  Country: US (occurrence: US)
  Receive Date: 20200707
  Receipt Date: 20200707
  Transmission Date: 20201103
  Serious: Yes (Other)
  Sender: FDA-Public Use
  Company Number: US-AMGEN-USASP2020106889

PATIENT
  Sex: Male

DRUGS (1)
  1. REPATHA [Suspect]
     Active Substance: EVOLOCUMAB
     Indication: PRODUCT USED FOR UNKNOWN INDICATION
     Dosage: UNK
     Route: 065
     Dates: start: 201912

REACTIONS (4)
  - Blood creatine phosphokinase increased [Unknown]
  - Atrial fibrillation [Unknown]
  - Muscle operation [Unknown]
  - Shoulder operation [Unknown]

NARRATIVE: CASE EVENT DATE: 2020
